FAERS Safety Report 9717010 (Version 1)
Quarter: 2013Q4

REPORT INFORMATION
  Report Type: Spontaneous
  Country: US (occurrence: US)
  Receive Date: 20131127
  Receipt Date: 20131127
  Transmission Date: 20140711
  Serious: Yes (Hospitalization)
  Sender: FDA-Public Use
  Company Number: US-TEVA-447106USA

PATIENT
  Age: 48 Year
  Sex: Female
  Weight: 55.39 kg

DRUGS (5)
  1. BACLOFEN [Suspect]
     Indication: BACK PAIN
     Dates: start: 201309, end: 2013
  2. BACLOFEN [Interacting]
     Indication: MUSCLE SPASMS
  3. PRISTIQ [Interacting]
     Indication: MAJOR DEPRESSION
     Dosage: 100 MILLIGRAM DAILY;
     Route: 048
     Dates: start: 20130909
  4. LYRICA [Concomitant]
  5. VISTARIL [Concomitant]

REACTIONS (3)
  - Drug interaction [Unknown]
  - Malaise [Unknown]
  - Lethargy [Unknown]
